FAERS Safety Report 5572284-8 (Version None)
Quarter: 2007Q4

REPORT INFORMATION
  Report Type: 
  Country: None (occurrence: None)
  Receive Date: 20071221
  Receipt Date: 20071213
  Transmission Date: 20080405
  Serious: Yes (Other)
  Sender: FDA-Public Use
  Company Number: US-PFIZER INC-2007105525

PATIENT
  Sex: Female

DRUGS (2)
  1. LYRICA [Suspect]
     Indication: PAIN
  2. LYRICA [Suspect]
     Indication: PARAESTHESIA

REACTIONS (6)
  - DIZZINESS [None]
  - FACIAL PALSY [None]
  - HYPOAESTHESIA TEETH [None]
  - SEDATION [None]
  - SOMNOLENCE [None]
  - SPEECH DISORDER [None]
